FAERS Safety Report 19113187 (Version 1)
Quarter: 2021Q2

REPORT INFORMATION
  Report Type: Report from Study
  Country: None (occurrence: RU)
  Receive Date: 20210408
  Receipt Date: 20210408
  Transmission Date: 20210717
  Serious: Yes (Death)
  Sender: FDA-Public Use
  Company Number: RU-ABBVIE-19P-251-3146622-00

PATIENT
  Age: 81 Year
  Sex: Male
  Weight: 91 kg

DRUGS (2)
  1. IBRUTINIB [Suspect]
     Active Substance: IBRUTINIB
     Indication: FOLLICULAR LYMPHOMA
     Route: 048
     Dates: start: 20171108, end: 2019
  2. RITUXIMAB. [Suspect]
     Active Substance: RITUXIMAB
     Indication: FOLLICULAR LYMPHOMA
     Route: 042
     Dates: start: 20171108

REACTIONS (1)
  - Death [Fatal]

NARRATIVE: CASE EVENT DATE: 20190424
